FAERS Safety Report 21815804 (Version 8)
Quarter: 2023Q1

REPORT INFORMATION
  Report Type: Report from Study
  Country: ZA (occurrence: None)
  Receive Date: 20230104
  Receipt Date: 20230224
  Transmission Date: 20230418
  Serious: Yes (Hospitalization)
  Sender: FDA-Public Use
  Company Number: ZA-Eisai Medical Research-EC-2022-131139

PATIENT
  Age: 58 Year
  Sex: Male
  Weight: 94.2 kg

DRUGS (19)
  1. LENVATINIB [Suspect]
     Active Substance: LENVATINIB
     Indication: Clear cell renal cell carcinoma
     Route: 048
     Dates: start: 20220411, end: 20221108
  2. LENVATINIB [Suspect]
     Active Substance: LENVATINIB
     Dosage: STARTING DOSE 20 MG, FLUCTUATED DOSE
     Route: 048
     Dates: start: 20221109
  3. QUAVONLIMAB [Suspect]
     Active Substance: QUAVONLIMAB
     Indication: Clear cell renal cell carcinoma
     Dosage: QUANVOLIMAB (MK-1308) 25 MG (+) PEMBROLIZUMAB (MK-3475) 400 MG
     Route: 041
     Dates: start: 20220411, end: 20220929
  4. PEMBROLIZUMAB [Suspect]
     Active Substance: PEMBROLIZUMAB
     Dosage: QUANVOLIMAB (MK-1308) 25 MG (+) PEMBROLIZUMAB (MK-3475) 400 MG
     Route: 041
     Dates: start: 20221109
  5. ENALAPRIL [Concomitant]
     Active Substance: ENALAPRIL
     Dates: start: 20020101
  6. OMEPRAZOLE [Concomitant]
     Active Substance: OMEPRAZOLE
     Dates: start: 20120101
  7. ACETAMINOPHEN [Concomitant]
     Active Substance: ACETAMINOPHEN
     Dates: start: 202201
  8. ALPRAZOLAM [Concomitant]
     Active Substance: ALPRAZOLAM
     Dates: start: 20220324
  9. OXYCODONE HYDROCHLORIDE [Concomitant]
     Active Substance: OXYCODONE HYDROCHLORIDE
     Dates: start: 20220420
  10. METOCLOPRAMIDE [Concomitant]
     Active Substance: METOCLOPRAMIDE
     Dates: start: 20220324, end: 20221230
  11. MINERAL OIL\PARAFFIN [Concomitant]
     Active Substance: MINERAL OIL\PARAFFIN
     Dates: start: 20220512
  12. ALLERGEX NON DROWSY [Concomitant]
     Dates: start: 20220512
  13. NALOXONE HYDROCHLORIDE\OXYCODONE HYDROCHLORIDE [Concomitant]
     Active Substance: NALOXONE HYDROCHLORIDE\OXYCODONE HYDROCHLORIDE
     Dates: start: 20220426
  14. IMMUNADUE [Concomitant]
     Dates: start: 20220614
  15. AMLODIPINE [Concomitant]
     Active Substance: AMLODIPINE BESYLATE
     Dates: start: 20220726, end: 20221230
  16. CELEBREX [Concomitant]
     Active Substance: CELECOXIB
     Dates: start: 20221109
  17. LACTOBACILLUS REUTERI [Concomitant]
     Active Substance: LACTOBACILLUS REUTERI
     Dates: start: 20221020
  18. MAGNESIUM [Concomitant]
     Active Substance: MAGNESIUM
     Dates: start: 20221020
  19. AUGMENTIN [Concomitant]
     Active Substance: AMOXICILLIN\CLAVULANATE POTASSIUM
     Dates: start: 20221101, end: 20221104

REACTIONS (1)
  - Diarrhoea [Recovered/Resolved]

NARRATIVE: CASE EVENT DATE: 20221104
